FAERS Safety Report 4573513-X (Version None)
Quarter: 2005Q1

REPORT INFORMATION
  Report Type: 
  Country: None (occurrence: None)
  Receive Date: 20050208
  Receipt Date: 20040907
  Transmission Date: 20050727
  Serious: No
  Sender: FDA-Public Use
  Company Number: US-GLAXOSMITHKLINE-A0524764A

PATIENT
  Age: 32 Year
  Sex: Female

DRUGS (2)
  1. PAXIL [Suspect]
     Dosage: 10MG PER DAY
     Route: 048
     Dates: start: 20011001, end: 20040902
  2. CLOMID [Concomitant]

REACTIONS (7)
  - DIZZINESS [None]
  - DRUG WITHDRAWAL SYNDROME [None]
  - FEELING OF RELAXATION [None]
  - PARAESTHESIA [None]
  - SOMNOLENCE [None]
  - WEIGHT INCREASED [None]
  - YAWNING [None]
